FAERS Safety Report 6831069-2 (Version None)
Quarter: 2010Q3

REPORT INFORMATION
  Report Type: 
  Country: None (occurrence: None)
  Receive Date: 20100712
  Receipt Date: 20100610
  Transmission Date: 20110219
  Serious: No
  Sender: FDA-Public Use
  Company Number: US-BAYER-201016940BCC

PATIENT
  Age: 75 Year
  Sex: Female
  Weight: 88 kg

DRUGS (12)
  1. ALEVE [Suspect]
     Indication: ARTHRALGIA
     Dosage: TOTAL DAILY DOSE: 880 MG  UNIT DOSE: 220 MG
     Route: 048
     Dates: start: 20040101
  2. EPLETLONE [Concomitant]
     Route: 065
  3. PLAVIX [Concomitant]
     Route: 065
  4. SIMVASTATIN [Concomitant]
     Route: 065
  5. ECOTRONE ASPIRIN [Concomitant]
     Route: 065
  6. CARVEDILOL [Concomitant]
     Route: 065
  7. FUROSE [Concomitant]
     Route: 065
  8. CENTRUM FOR MEN [Concomitant]
     Route: 065
  9. METFORMIN HCL [Concomitant]
     Route: 065
  10. ANIPRIL [Concomitant]
     Route: 065
  11. KLOR-CON [Concomitant]
     Route: 065
  12. INSULIN [Concomitant]
     Route: 065

REACTIONS (1)
  - ARTHRALGIA [None]
